FAERS Safety Report 5340817-2 (Version None)
Quarter: 2007Q2

REPORT INFORMATION
  Report Type: 
  Country: None (occurrence: None)
  Receive Date: 20070405
  Receipt Date: 20070201
  Transmission Date: 20071010
  Serious: No
  Sender: FDA-Public Use
  Company Number: US200702000347

PATIENT
  Age: 48 Year
  Sex: Female

DRUGS (6)
  1. CYMBALTA [Suspect]
     Indication: MOOD SWINGS
     Dosage: 30 UG, DAILY 1/D
  2. DIOVAN HCT [Concomitant]
  3. NIASPAN [Concomitant]
  4. VYTORIN [Concomitant]
  5. ESTRADIOL [Concomitant]
  6. PLAVIX [Concomitant]

REACTIONS (1)
  - COELIAC DISEASE [None]
